FAERS Safety Report 8779857 (Version 1)
Quarter: 2012Q4

REPORT INFORMATION
  Report Type: Spontaneous
  Country: CO (occurrence: None)
  Receive Date: 20120828
  Receipt Date: 20120828
  Transmission Date: 20130627
  Serious: Yes (Hospitalization)
  Sender: FDA-Public Use
  Company Number: MPS1-1000765

PATIENT
  Age: 13 Year
  Sex: Male
  Weight: 24 kg

DRUGS (1)
  1. ALDURAZYME [Suspect]
     Indication: MUCOPOLYSACCHARIDOSIS I
     Dosage: 24 vials, q4w
     Route: 042
     Dates: start: 20070814

REACTIONS (4)
  - Influenza [None]
  - Cough [None]
  - Laboratory test abnormal [None]
  - Lung disorder [None]
